FAERS Safety Report 5614056-1 (Version None)
Quarter: 2008Q1

REPORT INFORMATION
  Report Type: 
  Country: None (occurrence: None)
  Receive Date: 20080205
  Receipt Date: 20080124
  Transmission Date: 20080703
  Serious: Yes (Other)
  Sender: FDA-Public Use
  Company Number: JP-ROCHE-540791

PATIENT
  Age: 45 Year
  Sex: Female

DRUGS (4)
  1. CLONAZEPAM [Suspect]
     Indication: STRESS
     Route: 065
     Dates: start: 20071201
  2. PAXIL [Suspect]
     Indication: STRESS
     Route: 048
     Dates: start: 20060101
  3. HALCION [Suspect]
     Indication: STRESS
     Route: 048
     Dates: start: 20060101
  4. SERENACE [Concomitant]
     Indication: STRESS
     Route: 048
     Dates: start: 20071201

REACTIONS (2)
  - APRAXIA [None]
  - BLEPHAROSPASM [None]
